FAERS Safety Report 14468192 (Version 2)
Quarter: 2018Q2

REPORT INFORMATION
  Report Type: Spontaneous
  Country: AU (occurrence: AU)
  Receive Date: 20180131
  Receipt Date: 20180501
  Transmission Date: 20180711
  Serious: Yes (Hospitalization, Other)
  Sender: FDA-Public Use
  Company Number: AU-VISTAPHARM, INC.-VER201801-000268

PATIENT
  Age: 77 Year
  Sex: Female

DRUGS (7)
  1. AMITRIPTYLINE [Concomitant]
     Active Substance: AMITRIPTYLINE
     Indication: PRODUCT USED FOR UNKNOWN INDICATION
  2. BUPRENORPHINE. [Concomitant]
     Active Substance: BUPRENORPHINE
     Indication: PRODUCT USED FOR UNKNOWN INDICATION
     Dosage: PATCH
  3. TEMAZEPAM. [Suspect]
     Active Substance: TEMAZEPAM
     Indication: PRODUCT USED FOR UNKNOWN INDICATION
  4. DIAZEPAM. [Suspect]
     Active Substance: DIAZEPAM
     Indication: PRODUCT USED FOR UNKNOWN INDICATION
  5. OXYCODONE [Suspect]
     Active Substance: OXYCODONE
     Indication: SLEEP DISORDER
  6. OXYCODONE [Suspect]
     Active Substance: OXYCODONE
     Dosage: TABLETS
  7. SERTRALINE [Concomitant]
     Active Substance: SERTRALINE HYDROCHLORIDE
     Indication: PRODUCT USED FOR UNKNOWN INDICATION

REACTIONS (17)
  - Drug abuse [Unknown]
  - Fall [Unknown]
  - Judgement impaired [Unknown]
  - Tremor [Unknown]
  - Amnesia [Unknown]
  - Disturbance in attention [Unknown]
  - Dysarthria [Unknown]
  - Paranoia [Unknown]
  - Sensory disturbance [Unknown]
  - Restlessness [Unknown]
  - Altered visual depth perception [Unknown]
  - Hypersomnia [Unknown]
  - Hypervigilance [Unknown]
  - Insomnia [Unknown]
  - Overdose [Unknown]
  - Bruxism [Recovering/Resolving]
  - Anxiety [Unknown]
